FAERS Safety Report 6094690-8 (Version None)
Quarter: 2009Q1

REPORT INFORMATION
  Report Type: 
  Country: None (occurrence: None)
  Receive Date: 20090224
  Receipt Date: 20090209
  Transmission Date: 20090719
  Serious: Yes (Other)
  Sender: FDA-Public Use
  Company Number: JHP200900034

PATIENT
  Age: 61 Year
  Sex: Male

DRUGS (4)
  1. COLY-MYCIN M PARENTERAL (COLISTIN) INJECTION, 150MG [Suspect]
     Indication: BACTERAEMIA
     Dosage: 150 MG EVERY 36 HOURS, INTRAVENOUS
     Route: 042
  2. FLUDARABINE PHOSPHATE [Suspect]
     Indication: STEM CELL TRANSPLANT
  3. CYCLOSPORINE [Suspect]
     Indication: MYELODYSPLASTIC SYNDROME
  4. ANTIBIOTICS () [Suspect]
     Indication: PSEUDOMONAS INFECTION

REACTIONS (8)
  - ASTHENIA [None]
  - BLINDNESS CORTICAL [None]
  - BLOOD CREATININE INCREASED [None]
  - NEUROTOXICITY [None]
  - PARAPARESIS [None]
  - PATHOGEN RESISTANCE [None]
  - PROGRESSIVE MULTIFOCAL LEUKOENCEPHALOPATHY [None]
  - PSEUDOMONAL BACTERAEMIA [None]
